FAERS Safety Report 11048985 (Version 2)
Quarter: 2015Q2

REPORT INFORMATION
  Report Type: Spontaneous
  Country: RU (occurrence: RU)
  Receive Date: 20150420
  Receipt Date: 20150430
  Transmission Date: 20150821
  Serious: Yes (Life-Threatening, Hospitalization, Disabling, Other)
  Sender: FDA-Public Use
  Company Number: RU-GE HEALTHCARE MEDICAL DIAGNOSTICS-OSCN-PR-1504S-0072

PATIENT
  Age: 33 Year
  Sex: Female

DRUGS (2)
  1. OMNISCAN [Suspect]
     Active Substance: GADODIAMIDE
     Indication: SEIZURE
     Route: 042
     Dates: start: 20150315, end: 20150315
  2. OMNISCAN [Suspect]
     Active Substance: GADODIAMIDE
     Indication: DIAGNOSTIC PROCEDURE

REACTIONS (7)
  - Coma [Not Recovered/Not Resolved]
  - Loss of consciousness [Not Recovered/Not Resolved]
  - Brain injury [Not Recovered/Not Resolved]
  - Seizure [Not Recovered/Not Resolved]
  - Respiratory arrest [Unknown]
  - Cerebral ischaemia [Not Recovered/Not Resolved]
  - Pyrexia [Not Recovered/Not Resolved]

NARRATIVE: CASE EVENT DATE: 20150315
